FAERS Safety Report 7240933-4 (Version None)
Quarter: 2011Q1

REPORT INFORMATION
  Report Type: 
  Country: None (occurrence: None)
  Receive Date: 20110124
  Receipt Date: 20110104
  Transmission Date: 20110831
  Serious: Yes (Other)
  Sender: FDA-Public Use
  Company Number: US-PFIZER INC-2009249531

PATIENT
  Sex: Female
  Weight: 63 kg

DRUGS (11)
  1. PREMARIN [Suspect]
     Indication: HORMONE REPLACEMENT THERAPY
     Dosage: 1.25 MG, UNK
     Route: 048
     Dates: start: 19850101, end: 20010101
  2. SYNTHROID [Concomitant]
     Indication: HYPOTHYROIDISM
     Dosage: 0.125 MG, UNK
     Dates: end: 20040101
  3. MEDROXYPROGESTERONE ACETATE [Suspect]
     Indication: HORMONE REPLACEMENT THERAPY
     Dosage: 5 MG, UNK
     Route: 048
     Dates: start: 19850101, end: 20010101
  4. LIPITOR [Concomitant]
     Indication: BLOOD CHOLESTEROL INCREASED
     Dosage: 20 MG, UNK
     Dates: end: 20040101
  5. CARDIZEM [Concomitant]
     Indication: CARDIAC DISORDER
     Dosage: 240 MG, UNK
     Dates: start: 19990101
  6. XANAX [Concomitant]
     Indication: ANXIETY
     Dosage: 0.25 MG, UNK
  7. MEDROXYPROGESTERONE ACETATE [Suspect]
     Dosage: 5 MG, UNK
     Dates: start: 19850101, end: 20010101
  8. ISOSORBIDE [Concomitant]
     Indication: CARDIAC DISORDER
     Dosage: 0.30 MG, UNK
     Dates: start: 19990101
  9. BAYCOL [Concomitant]
     Indication: BLOOD CHOLESTEROL INCREASED
     Dosage: UNK
     Dates: end: 20040101
  10. IMDUR [Concomitant]
     Indication: CARDIAC DISORDER
     Dosage: 30 MG, UNK
  11. CYCRIN [Suspect]
     Indication: HORMONE REPLACEMENT THERAPY
     Dosage: UNK
     Dates: start: 19850101, end: 20010101

REACTIONS (1)
  - BREAST CANCER FEMALE [None]
